FAERS Safety Report 18952439 (Version 2)
Quarter: 2021Q2

REPORT INFORMATION
  Report Type: Spontaneous
  Country: CA (occurrence: CA)
  Receive Date: 20210301
  Receipt Date: 20210419
  Transmission Date: 20210717
  Serious: Yes (Other)
  Sender: FDA-Public Use
  Company Number: CA-ROCHE-2778640

PATIENT
  Age: 75 Year
  Sex: Female

DRUGS (6)
  1. TACROLIMUS. [Suspect]
     Active Substance: TACROLIMUS
     Indication: IMMUNOSUPPRESSION
     Route: 065
  2. PREDNISONE. [Suspect]
     Active Substance: PREDNISONE
     Indication: IMMUNOSUPPRESSION
     Route: 065
  3. PREDNISONE. [Suspect]
     Active Substance: PREDNISONE
     Indication: HEART TRANSPLANT
  4. TACROLIMUS. [Suspect]
     Active Substance: TACROLIMUS
     Indication: HEART TRANSPLANT
  5. MYCOPHENOLATE MOFETIL. [Suspect]
     Active Substance: MYCOPHENOLATE MOFETIL
     Indication: HEART TRANSPLANT
  6. MYCOPHENOLATE MOFETIL. [Suspect]
     Active Substance: MYCOPHENOLATE MOFETIL
     Indication: IMMUNOSUPPRESSION
     Route: 065

REACTIONS (4)
  - Renal impairment [Unknown]
  - Confusional state [Unknown]
  - Haemolytic anaemia [Unknown]
  - Tremor [Unknown]
